FAERS Safety Report 25030816 (Version 1)
Quarter: 2025Q1

REPORT INFORMATION
  Report Type: Spontaneous
  Country: FR (occurrence: FR)
  Receive Date: 20250303
  Receipt Date: 20250303
  Transmission Date: 20250408
  Serious: Yes (Life-Threatening)
  Sender: BOEHRINGER INGELHEIM
  Company Number: None

PATIENT
  Age: 55 Year
  Sex: Male
  Weight: 73 kg

DRUGS (10)
  1. JARDIANCE [Suspect]
     Active Substance: EMPAGLIFLOZIN
     Indication: Cardiac failure
     Dates: start: 20231201, end: 20250204
  2. TAHOR 40 mg, film coated tablet [Concomitant]
     Indication: Product used for unknown indication
  3. COSIMPREL 10 mg/10 mg, film coated tablet [Concomitant]
     Indication: Product used for unknown indication
  4. ACIDE ACETYLSALICYLIQUE BIOGARAN 100 mg, gastro-resistant tablet [Concomitant]
     Indication: Product used for unknown indication
  5. L THYROXIN HENNING 175 micrograms, scored tablet [Concomitant]
     Indication: Product used for unknown indication
  6. FUROSEMIDE BIOGARAN 40 mg, scored tablet [Concomitant]
     Indication: Product used for unknown indication
  7. NOVORAPID PUMPCART 100  units/ml, injectable solution in cartridge [Concomitant]
     Indication: Product used for unknown indication
  8. ESOMEPRAZOLE MAGNESIUM [Concomitant]
     Active Substance: ESOMEPRAZOLE MAGNESIUM
     Indication: Product used for unknown indication
  9. GAVISCON,drinkable suspension in sachet [Concomitant]
     Indication: Product used for unknown indication
  10. METOPIMAZINE ARROW 7,5 mg SUGAR-FREE, orodispersible tablet sweetened [Concomitant]
     Indication: Product used for unknown indication

REACTIONS (2)
  - Coma acidotic [Recovering/Resolving]
  - Vasoplegia syndrome [Recovering/Resolving]

NARRATIVE: CASE EVENT DATE: 20250204
